FAERS Safety Report 9382002 (Version 3)
Quarter: 2013Q3

REPORT INFORMATION
  Report Type: Spontaneous
  Country: JP (occurrence: JP)
  Receive Date: 20130703
  Receipt Date: 20130717
  Transmission Date: 20140515
  Serious: Yes (Other)
  Sender: FDA-Public Use
  Company Number: JP-VERTEX PHARMACEUTICALS INC-2013-007629

PATIENT
  Age: 57 Year
  Sex: Female

DRUGS (6)
  1. TELAVIC [Suspect]
     Indication: CHRONIC HEPATITIS C
     Dosage: 2250 MG, QD
     Route: 048
     Dates: start: 20130515, end: 20130623
  2. RIBAVIRIN [Concomitant]
     Dosage: 400 MG, QD
     Route: 048
     Dates: start: 20130515, end: 20130623
  3. PEGINTERFERON ALFA-2B [Concomitant]
     Dosage: 80 ?G/KG, QW
     Route: 058
     Dates: start: 20130515, end: 20130619
  4. CALONAL [Concomitant]
     Dosage: 1200 MG, QD
     Route: 048
     Dates: start: 20130515, end: 20130623
  5. MUCOSTA [Concomitant]
     Dosage: 300 MG, QD
     Route: 048
     Dates: start: 20130515, end: 20130623
  6. PRIMPERAN [Concomitant]
     Dosage: 5 MG, QD
     Route: 048
     Dates: start: 20130515, end: 20130623

REACTIONS (2)
  - Drug eruption [Recovered/Resolved]
  - Hyperuricaemia [Recovered/Resolved]
